FAERS Safety Report 11519483 (Version 1)
Quarter: 2015Q3

REPORT INFORMATION
  Report Type: Spontaneous
  Country: US (occurrence: US)
  Receive Date: 20150918
  Receipt Date: 20150918
  Transmission Date: 20151125
  Serious: Yes (Other)
  Sender: FDA-Public Use
  Company Number: US-GLENMARK PHARMACEUTICALS INC, USA.-2014GMK009364

PATIENT
  Age: 46 Year
  Sex: Female

DRUGS (9)
  1. NORETHINDRONE ACETATE. [Suspect]
     Active Substance: NORETHINDRONE ACETATE
     Dosage: 20 MG, QD, ADDITIONAL 5 MG  AT BEDTIME WAS GIVEN FOR INCREASED UTERINE PAIN
     Route: 048
     Dates: start: 201312
  2. VITAMIN D3 [Concomitant]
     Active Substance: CHOLECALCIFEROL
     Dosage: 4000 IU, QD
     Route: 048
  3. MOTRIN [Concomitant]
     Active Substance: IBUPROFEN
     Dosage: 800 MG, TID
     Dates: start: 20140320, end: 20140402
  4. NORETHINDRONE ACETATE. [Suspect]
     Active Substance: NORETHINDRONE ACETATE
     Dosage: 5 MG, HS
     Route: 048
     Dates: start: 20140320, end: 20140402
  5. LUPRON DEPOT [Suspect]
     Active Substance: LEUPROLIDE ACETATE
     Dosage: 11.25 MG, PER THREE MONTHS
     Dates: start: 20140313
  6. BENADRYL [Concomitant]
     Active Substance: DIPHENHYDRAMINE HYDROCHLORIDE
     Dosage: UNK
  7. TRAMADOL. [Concomitant]
     Active Substance: TRAMADOL
     Dosage: 50 MG, BID
     Dates: start: 20140320, end: 20140402
  8. TYLENOL [Concomitant]
     Active Substance: ACETAMINOPHEN
     Dosage: 500 MG, ONCE TO TWICE A DAY
     Dates: start: 20140320, end: 20140402
  9. IRON [Concomitant]
     Active Substance: IRON
     Dosage: 150 MG, QD
     Route: 048

REACTIONS (5)
  - Vaginal haemorrhage [Recovering/Resolving]
  - Prescribed overdose [Unknown]
  - Uterine pain [Recovering/Resolving]
  - Activities of daily living impaired [Recovering/Resolving]
  - Menorrhagia [Recovering/Resolving]

NARRATIVE: CASE EVENT DATE: 20140320
